FAERS Safety Report 9739308 (Version 1)
Quarter: 2013Q4

REPORT INFORMATION
  Report Type: Report from Study
  Country: US (occurrence: US)
  Receive Date: 20131209
  Receipt Date: 20131209
  Transmission Date: 20140711
  Serious: Yes (Other)
  Sender: FDA-Public Use
  Company Number: US-CELGENEUS-163-20785-13120205

PATIENT
  Age: 64 Year
  Sex: Male
  Weight: 138 kg

DRUGS (3)
  1. THALOMID [Suspect]
     Indication: PLASMA CELL MYELOMA
     Route: 048
  2. VELCADE [Suspect]
     Indication: PLASMA CELL MYELOMA
     Route: 065
  3. DEXAMETHASONE [Concomitant]
     Indication: PLASMA CELL MYELOMA
     Route: 065

REACTIONS (1)
  - Toxicity to various agents [Unknown]
